FAERS Safety Report 20170061 (Version 1)
Quarter: 2021Q4

REPORT INFORMATION
  Report Type: Spontaneous
  Country: CN (occurrence: CN)
  Receive Date: 20211210
  Receipt Date: 20211210
  Transmission Date: 20220303
  Serious: Yes (Hospitalization)
  Sender: FDA-Public Use
  Company Number: CN-PFIZER INC-202101676771

PATIENT
  Age: 78 Year
  Sex: Male
  Weight: 64 kg

DRUGS (3)
  1. EPIRUBICIN HYDROCHLORIDE [Suspect]
     Active Substance: EPIRUBICIN HYDROCHLORIDE
     Indication: Neoplasm malignant
     Dosage: 84 MG, 1X/DAY
     Route: 041
     Dates: start: 20210121, end: 20210121
  2. CAMRELIZUMAB [Suspect]
     Active Substance: CAMRELIZUMAB
     Indication: Neoplasm malignant
     Dosage: 200 MG, 1X/DAY
     Route: 041
     Dates: start: 20210121, end: 20210121
  3. DACARBAZINE [Suspect]
     Active Substance: DACARBAZINE
     Indication: Neoplasm malignant
     Dosage: 635 MG, 1X/DAY
     Route: 041
     Dates: start: 20210121, end: 20210121

REACTIONS (1)
  - Capillary disorder [Unknown]

NARRATIVE: CASE EVENT DATE: 20210204
